FAERS Safety Report 5226543-9 (Version None)
Quarter: 2007Q1

REPORT INFORMATION
  Report Type: 
  Country: None (occurrence: None)
  Receive Date: 20070201
  Receipt Date: 20070123
  Transmission Date: 20070707
  Serious: No
  Sender: FDA-Public Use
  Company Number: FR-SANOFI-SYNTHELABO-A02200603178

PATIENT
  Sex: Male
  Weight: 79 kg

DRUGS (4)
  1. PIASCLEDINE [Concomitant]
     Indication: DRUG USE FOR UNKNOWN INDICATION
     Route: 048
  2. HYSAAR [Concomitant]
     Indication: DRUG USE FOR UNKNOWN INDICATION
     Route: 048
  3. LEVOTHYROXINE SODIUM [Concomitant]
     Indication: HYPOTHYROIDISM
     Route: 048
  4. PLAVIX [Suspect]
     Indication: CEREBROVASCULAR ACCIDENT
     Route: 048
     Dates: start: 20060629, end: 20061209

REACTIONS (5)
  - IRON METABOLISM DISORDER [None]
  - PORPHYRIA NON-ACUTE [None]
  - PORPHYRIN METABOLISM DISORDER [None]
  - PORPHYRINS STOOL INCREASED [None]
  - PORPHYRINS URINE INCREASED [None]
